FAERS Safety Report 9486567 (Version 2)
Quarter: 2013Q3

REPORT INFORMATION
  Report Type: Report from Study
  Country: AU (occurrence: AU)
  Receive Date: 20130829
  Receipt Date: 20130912
  Transmission Date: 20140515
  Serious: Yes (Death)
  Sender: FDA-Public Use
  Company Number: PHHY2013AU094087

PATIENT
  Age: 72 Year
  Sex: Female

DRUGS (9)
  1. ACLASTA [Suspect]
     Indication: OSTEOPOROSIS
     Dosage: 5 MG, ONCE YEARLY
     Route: 042
     Dates: start: 20100708
  2. ACLASTA [Suspect]
     Dosage: 5 MG,ONCE YEARLY
     Route: 042
     Dates: start: 20110720
  3. ACLASTA [Suspect]
     Dosage: 5 MG,ONCE YEARLY
     Route: 042
     Dates: start: 20120919
  4. ASPIRIN (E.C.) [Concomitant]
     Dosage: 1 DF, QD
  5. BRICANYL TURBUHALER [Concomitant]
     Dosage: 1 DF, AS NEDDED
  6. HYDROXYUREA [Concomitant]
     Dosage: 1 DF, BID
  7. PANADOL OSTEO [Concomitant]
     Indication: OSTEOARTHRITIS
     Dosage: 2 DF, QID
  8. SERETIDE EVOHALER [Concomitant]
     Indication: ASTHMA
     Dosage: 2 DF, BID
  9. SPIRIVA [Concomitant]
     Dosage: 1 DF, AT NIGHT

REACTIONS (3)
  - Death [Fatal]
  - Weight decreased [Unknown]
  - Bone pain [Unknown]
